FAERS Safety Report 7479242-7 (Version None)
Quarter: 2011Q2

REPORT INFORMATION
  Report Type: 
  Country: None (occurrence: None)
  Receive Date: 20110513
  Receipt Date: 20110426
  Transmission Date: 20111010
  Serious: Yes (Hospitalization)
  Sender: FDA-Public Use
  Company Number: B0718279A

PATIENT
  Sex: Female
  Weight: 36.3 kg

DRUGS (10)
  1. TACROLIMUS [Concomitant]
     Indication: IMMUNOSUPPRESSION
     Dosage: .54MG PER DAY
     Route: 065
     Dates: start: 20100716
  2. METHOTREXATE [Concomitant]
     Indication: IMMUNOSUPPRESSION
     Dosage: 10MG PER DAY
     Route: 065
     Dates: start: 20100717, end: 20100819
  3. VEPESID [Suspect]
     Indication: ALLOGENIC BONE MARROW TRANSPLANTATION THERAPY
     Dosage: 1090MG PER DAY
     Route: 042
     Dates: start: 20100710, end: 20100710
  4. KYTRIL [Concomitant]
     Dosage: 2.4MG PER DAY
     Route: 042
     Dates: end: 20100712
  5. URSO 250 [Concomitant]
     Dosage: 350MG PER DAY
     Route: 048
  6. ALKERAN [Suspect]
     Dosage: 60MGM2 PER DAY
     Route: 042
     Dates: start: 20100713, end: 20100713
  7. AMPHOTERICIN B [Concomitant]
     Dosage: 3ML PER DAY
     Route: 048
     Dates: end: 20100722
  8. BACCIDAL [Concomitant]
     Dosage: 8IUAX PER DAY
     Route: 048
     Dates: end: 20100722
  9. ALKERAN [Suspect]
     Indication: ALLOGENIC BONE MARROW TRANSPLANTATION THERAPY
     Dosage: 70MGM2 PER DAY
     Route: 042
     Dates: start: 20100711, end: 20100712
  10. VICCLOX [Concomitant]
     Dosage: 366MG PER DAY
     Route: 042

REACTIONS (10)
  - HISTIOCYTOSIS HAEMATOPHAGIC [None]
  - HAEMATOCHEZIA [None]
  - ALANINE AMINOTRANSFERASE INCREASED [None]
  - JAUNDICE [None]
  - ASPARTATE AMINOTRANSFERASE INCREASED [None]
  - BLOOD AMYLASE INCREASED [None]
  - THROMBOTIC MICROANGIOPATHY [None]
  - SERUM FERRITIN INCREASED [None]
  - PYREXIA [None]
  - VENOOCCLUSIVE LIVER DISEASE [None]
